FAERS Safety Report 4728212-8 (Version None)
Quarter: 2005Q3

REPORT INFORMATION
  Report Type: 
  Country: None (occurrence: None)
  Receive Date: 20050728
  Receipt Date: 20050728
  Transmission Date: 20060218
  Serious: No
  Sender: FDA-Public Use
  Company Number: None

PATIENT
  Sex: Female
  Weight: 77.1115 kg

DRUGS (4)
  1. ORTHO-NOVUM [Suspect]
     Indication: CONTRACEPTION
     Dosage: Q DAY
     Dates: start: 19880101, end: 20050728
  2. ORTHO TRI-CYCLEN [Suspect]
     Indication: CONTRACEPTION
     Dosage: Q DAY
     Dates: start: 19880101, end: 20050728
  3. TRI-LEVLEN 28 [Suspect]
     Dosage: Q DAY
     Dates: start: 19880101, end: 20050728
  4. TRIPHASIL-28 [Suspect]
     Dosage: Q DAY
     Dates: start: 19880101, end: 20050728

REACTIONS (2)
  - PHOTOSENSITIVITY REACTION [None]
  - PIGMENTATION DISORDER [None]
